FAERS Safety Report 5330600-6 (Version None)
Quarter: 2007Q2

REPORT INFORMATION
  Report Type: 
  Country: None (occurrence: None)
  Receive Date: 20070516
  Receipt Date: 20070507
  Transmission Date: 20071010
  Serious: Yes (Hospitalization)
  Sender: FDA-Public Use
  Company Number: E2090-00236-SPO-JP

PATIENT
  Age: 15 Year
  Sex: Female

DRUGS (1)
  1. ZONISAMIDE [Suspect]
     Dosage: ORAL
     Route: 048

REACTIONS (3)
  - DIALYSIS [None]
  - RASH [None]
  - RENAL FAILURE [None]
